FAERS Safety Report 15751742 (Version 1)
Quarter: 2018Q4

REPORT INFORMATION
  Report Type: Report from Study
  Country: US (occurrence: US)
  Receive Date: 20181221
  Receipt Date: 20181221
  Transmission Date: 20190205
  Serious: Yes (Hospitalization, Other)
  Sender: FDA-Public Use
  Company Number: US-GLAXOSMITHKLINE-US2018230076

PATIENT
  Age: 59 Year
  Sex: Female

DRUGS (1)
  1. PROPAFENONE HYDROCHLORIDE. [Suspect]
     Active Substance: PROPAFENONE HYDROCHLORIDE
     Indication: PRODUCT USED FOR UNKNOWN INDICATION
     Dosage: 300 MG,IN TOTAL
     Route: 048

REACTIONS (4)
  - Syncope [Recovered/Resolved]
  - Atrioventricular block first degree [Recovered/Resolved]
  - Ventricular tachycardia [Recovered/Resolved]
  - Overdose [Unknown]
